FAERS Safety Report 8608080-4 (Version None)
Quarter: 2012Q3

REPORT INFORMATION
  Report Type: 
  Country: None (occurrence: None)
  Receive Date: 20120821
  Receipt Date: 20120816
  Transmission Date: 20120928
  Serious: Yes (Hospitalization)
  Sender: FDA-Public Use
  Company Number: PHHO2012FR012077

PATIENT
  Sex: Male
  Weight: 85 kg

DRUGS (6)
  1. ATORVASTATIN [Concomitant]
     Indication: HYPERCHOLESTEROLAEMIA
     Dosage: 10 MG, DAILY
     Route: 048
     Dates: start: 20020101
  2. PERMIXON [Concomitant]
     Indication: BENIGN PROSTATIC HYPERPLASIA
     Dosage: 320 MG, DAILY
     Route: 048
     Dates: start: 20070101, end: 20120729
  3. TASIGNA [Suspect]
     Indication: MALIGNANT MELANOMA
     Dosage: 800 MG, DAILY
     Route: 048
     Dates: start: 20120126, end: 20120806
  4. METEOSPASMYL [Concomitant]
     Indication: DYSPEPSIA
     Dosage: UNK
     Route: 048
  5. ETIOVEN [Concomitant]
     Indication: VENOUS INSUFFICIENCY
     Dosage: 30 MG, DAILY
     Route: 048
     Dates: start: 20090101
  6. LANSOPRAZOLE [Concomitant]
     Indication: DYSPEPSIA
     Dosage: 15 MG, UNK
     Route: 048
     Dates: start: 20100101

REACTIONS (1)
  - URINARY RETENTION [None]
